FAERS Safety Report 6015343-8 (Version None)
Quarter: 2008Q4

REPORT INFORMATION
  Report Type: 
  Country: None (occurrence: None)
  Receive Date: 20081204
  Receipt Date: 20081126
  Transmission Date: 20090506
  Serious: Yes (Death)
  Sender: FDA-Public Use
  Company Number: WAES 0812USA00149

PATIENT

DRUGS (1)
  1. COZAAR [Suspect]
     Dosage: PO
     Route: 048

REACTIONS (1)
  - DEATH [None]
